FAERS Safety Report 13449508 (Version 2)
Quarter: 2017Q2

REPORT INFORMATION
  Report Type: Spontaneous
  Country: GB (occurrence: GB)
  Receive Date: 20170417
  Receipt Date: 20170420
  Transmission Date: 20170830
  Serious: Yes (Hospitalization, Other)
  Sender: FDA-Public Use
  Company Number: GB-MYLANLABS-2017M1021302

PATIENT

DRUGS (3)
  1. CLOZARIL [Suspect]
     Active Substance: CLOZAPINE
     Indication: SCHIZOPHRENIA
     Dosage: UNK
     Route: 048
     Dates: start: 19970415
  2. CLOZARIL [Suspect]
     Active Substance: CLOZAPINE
     Dosage: 900 MG, QD
     Route: 048
     Dates: start: 2010
  3. CLOZARIL [Suspect]
     Active Substance: CLOZAPINE
     Dosage: 925 MG, QD
     Route: 048

REACTIONS (4)
  - Off label use [Unknown]
  - Bereavement [Unknown]
  - Antipsychotic drug level above therapeutic [Unknown]
  - Prescribed overdose [Unknown]

NARRATIVE: CASE EVENT DATE: 2010
